APPROVED DRUG PRODUCT: DIGOXIN
Active Ingredient: DIGOXIN
Strength: 0.25MG/ML
Dosage Form/Route: INJECTABLE;INJECTION
Application: A040206 | Product #001
Applicant: HOSPIRA INC
Approved: Aug 28, 1998 | RLD: No | RS: No | Type: DISCN